FAERS Safety Report 7464009-6 (Version None)
Quarter: 2011Q2

REPORT INFORMATION
  Report Type: 
  Country: None (occurrence: None)
  Receive Date: 20110506
  Receipt Date: 20110425
  Transmission Date: 20111010
  Serious: Yes (Hospitalization)
  Sender: FDA-Public Use
  Company Number: RU-BAYER-2011-035087

PATIENT
  Age: 40 Year
  Sex: Male
  Weight: 79.819 kg

DRUGS (9)
  1. AMOKSIKLAV [Concomitant]
     Indication: PNEUMONIA
     Dosage: UNK
     Dates: start: 20110115, end: 20110117
  2. MOXIFLOXACIN [Suspect]
     Indication: PNEUMONIA
     Dosage: 400 MG, QD
     Route: 042
     Dates: start: 20110117, end: 20110122
  3. SUMAMED [Concomitant]
     Indication: PNEUMONIA
     Dosage: UNK
     Dates: start: 20110115, end: 20110117
  4. CLAFORAN [Concomitant]
     Indication: PNEUMONIA
     Dosage: UNK
     Dates: start: 20110110, end: 20110115
  5. AMBROXOL [Concomitant]
     Dosage: 120 MG, QD
     Dates: start: 20110115, end: 20110124
  6. HEPARIN [Concomitant]
     Dosage: 10000 IU, QD
     Dates: start: 20110115, end: 20110120
  7. AVELOX [Suspect]
     Indication: PNEUMONIA
     Dosage: 400 MG, QD
     Route: 048
     Dates: start: 20110122, end: 20110124
  8. SULPERASON [Concomitant]
     Dosage: 4 G, QD
     Dates: start: 20110122, end: 20110124
  9. KETONAL [Concomitant]
     Dosage: 2 /ML, QD
     Dates: start: 20110115, end: 20110118

REACTIONS (1)
  - PYOTHORAX [None]
